FAERS Safety Report 12331615 (Version 2)
Quarter: 2016Q3

REPORT INFORMATION
  Report Type: Spontaneous
  Country: JP (occurrence: JP)
  Receive Date: 20160504
  Receipt Date: 20160701
  Transmission Date: 20161109
  Serious: No
  Sender: FDA-Public Use
  Company Number: JP-009507513-1604JPN018074

PATIENT
  Age: 69 Year
  Sex: Female

DRUGS (10)
  1. RENAGEL [Concomitant]
     Active Substance: SEVELAMER HYDROCHLORIDE
     Dosage: DAILY DOSE UNKNOWN
  2. L CARTIN [Concomitant]
     Active Substance: LEVOCARNITINE HYDROCHLORIDE
     Dosage: DAILY DOSE UNKNOWN
  3. URSO [Concomitant]
     Active Substance: URSODIOL
     Dosage: DAILY DOSE UNKNOWN
  4. REGPARA [Concomitant]
     Active Substance: CINACALCET HYDROCHLORIDE
     Dosage: DAILY DOSE UNKNOWN
  5. PRIMPERAN [Concomitant]
     Active Substance: METOCLOPRAMIDE HYDROCHLORIDE
     Dosage: DAILY DOSE UNKNOWN
  6. PREDNISOLONE. [Concomitant]
     Active Substance: PREDNISOLONE
     Dosage: DAILY DOSE UNKNOWN
  7. BELSOMRA [Suspect]
     Active Substance: SUVOREXANT
     Indication: INSOMNIA
     Dosage: 15 MG ONCE A DAY
     Route: 048
     Dates: start: 20160413, end: 20160420
  8. TAKEPRON [Concomitant]
     Active Substance: LANSOPRAZOLE
     Dosage: DAILY DOSE UNKNOWN
  9. SELBEX [Concomitant]
     Active Substance: TEPRENONE
     Dosage: DAILY DOSE UNKNOWN
  10. FERROUS SULFATE. [Concomitant]
     Active Substance: FERROUS SULFATE
     Dosage: DAILY DOSE UNKNOWN

REACTIONS (1)
  - Hypotonia [Recovered/Resolved]

NARRATIVE: CASE EVENT DATE: 20160415
